FAERS Safety Report 5582632-0 (Version None)
Quarter: 2008Q1

REPORT INFORMATION
  Report Type: 
  Country: None (occurrence: None)
  Receive Date: 20080107
  Receipt Date: 20071228
  Transmission Date: 20080703
  Serious: Yes (Other)
  Sender: FDA-Public Use
  Company Number: PHHY2007BR01118

PATIENT
  Age: 63 Year
  Sex: Male

DRUGS (1)
  1. GALVUS MET [Suspect]
     Dosage: 100/850MG
     Route: 048

REACTIONS (1)
  - BLOOD GLUCOSE INCREASED [None]
